FAERS Safety Report 25614829 (Version 1)
Quarter: 2025Q3

REPORT INFORMATION
  Report Type: Spontaneous
  Country: MY (occurrence: MY)
  Receive Date: 20250729
  Receipt Date: 20250729
  Transmission Date: 20251020
  Serious: Yes (Other)
  Sender: CELLTRION
  Company Number: MY-CELLTRION INC.-2025MY024973

PATIENT

DRUGS (1)
  1. TRUXIMA [Suspect]
     Active Substance: RITUXIMAB-ABBS
     Indication: Diffuse large B-cell lymphoma
     Route: 042

REACTIONS (2)
  - Blood pressure increased [Recovering/Resolving]
  - Intentional product use issue [Unknown]
